FAERS Safety Report 16975068 (Version 1)
Quarter: 2019Q4

REPORT INFORMATION
  Report Type: Spontaneous
  Country: US (occurrence: US)
  Receive Date: 20191030
  Receipt Date: 20191030
  Transmission Date: 20200122
  Serious: No
  Sender: FDA-Public Use
  Company Number: US-SA-2019SA294167

PATIENT
  Age: 39 Year
  Sex: Female

DRUGS (1)
  1. DUPIXENT [Suspect]
     Active Substance: DUPILUMAB
     Indication: DERMATITIS ATOPIC
     Dosage: UNK
     Dates: start: 20180918, end: 201909

REACTIONS (4)
  - Weight increased [Recovering/Resolving]
  - Alopecia [Not Recovered/Not Resolved]
  - Eye disorder [Recovering/Resolving]
  - Arthralgia [Recovering/Resolving]
